FAERS Safety Report 25823140 (Version 3)
Quarter: 2025Q4

REPORT INFORMATION
  Report Type: Report from Study
  Country: US (occurrence: US)
  Receive Date: 20250919
  Receipt Date: 20251113
  Transmission Date: 20260118
  Serious: Yes (Disabling)
  Sender: ROCHE
  Company Number: US-ROCHE-10000387154

PATIENT
  Age: 79 Year
  Sex: Male
  Weight: 106.59 kg

DRUGS (16)
  1. LUCENTIS [Suspect]
     Active Substance: RANIBIZUMAB
     Indication: Macular oedema
     Dosage: GIVEN EVERY 4-8 WEEKS BY INJECTION TO BOTH EYES
     Route: 031
     Dates: start: 2024, end: 2024
  2. VABYSMO [Suspect]
     Active Substance: FARICIMAB-SVOA
     Indication: Diabetic retinal oedema
     Dosage: GIVEN ONCE BY INJECTION TO LEFT EYE
     Route: 031
     Dates: start: 202404, end: 20240501
  3. AMLODIPINE [Concomitant]
     Active Substance: AMLODIPINE BESYLATE
     Indication: Hypertension
  4. WARFARIN [Concomitant]
     Active Substance: WARFARIN
     Dosage: 3.75 MG 5 DAYS A WEEK AND 2.5 MG 2 DAY A WEEK
  5. NOVOLIN 70/30 [Concomitant]
     Active Substance: INSULIN HUMAN
  6. ALLOPURINOL [Concomitant]
     Active Substance: ALLOPURINOL
  7. LEVOTHYROXINE [Concomitant]
     Active Substance: LEVOTHYROXINE
  8. APRISO [Concomitant]
     Active Substance: MESALAMINE
  9. LABETALOL [Concomitant]
     Active Substance: LABETALOL
  10. SIMVASTATIN [Concomitant]
     Active Substance: SIMVASTATIN
  11. GABAPENTIN [Concomitant]
     Active Substance: GABAPENTIN
     Dosage: 100 MG IN THE MORNING
  12. GABAPENTIN [Concomitant]
     Active Substance: GABAPENTIN
     Dosage: 200 MG IN THE EVENING
  13. DOXAZOSIN [Concomitant]
     Active Substance: DOXAZOSIN MESYLATE
  14. VICODIN [Concomitant]
     Active Substance: ACETAMINOPHEN\HYDROCODONE BITARTRATE
     Dosage: 7.5/325 MG PRN
  15. MAGNESIUM [Concomitant]
     Active Substance: MAGNESIUM
  16. ZINC [Concomitant]
     Active Substance: ZINC

REACTIONS (4)
  - Blindness unilateral [Not Recovered/Not Resolved]
  - Retinal detachment [Not Recovered/Not Resolved]
  - Eye pain [Unknown]
  - Injection site pain [Unknown]

NARRATIVE: CASE EVENT DATE: 20240501
